FAERS Safety Report 6679333-4 (Version None)
Quarter: 2010Q2

REPORT INFORMATION
  Report Type: 
  Country: None (occurrence: None)
  Receive Date: 20100413
  Receipt Date: 20100401
  Transmission Date: 20101027
  Serious: Yes (Life-Threatening, Hospitalization)
  Sender: FDA-Public Use
  Company Number: JP-PFIZER INC-2010024718

PATIENT
  Age: 54 Year
  Sex: Male
  Weight: 76 kg

DRUGS (18)
  1. CAMPTOSAR [Suspect]
     Indication: COLON CANCER
     Dosage: 200 MG (110.5 MG/M2)
     Route: 041
     Dates: start: 20091023, end: 20091023
  2. CAMPTOSAR [Suspect]
     Dosage: 160 MG (88.4 MG/M2), UNK
     Route: 041
     Dates: start: 20091113, end: 20091113
  3. CAMPTOSAR [Suspect]
     Dosage: 200 MG, UNK
     Route: 041
     Dates: start: 20091127, end: 20091211
  4. CAMPTOSAR [Suspect]
     Dosage: 160 MG (88.4 MG/M2)
     Route: 041
     Dates: start: 20091225, end: 20091225
  5. CAMPTOSAR [Suspect]
     Dosage: 200 MG (110.5 MG/M2)
     Route: 041
     Dates: start: 20100108, end: 20100108
  6. CAMPTOSAR [Suspect]
     Dosage: 160 MG (88.4 MG/M2)
     Route: 041
     Dates: start: 20100122, end: 20100122
  7. CALCIUM LEVOFOLINATE [Concomitant]
     Indication: COLON CANCER
     Dosage: 300 MG (165.7 MG/M2), UNK
     Route: 041
     Dates: start: 20091023, end: 20100122
  8. FLUOROURACIL [Concomitant]
     Indication: COLON CANCER
     Dosage: 500 MG (276.2 MG/M2)
     Route: 040
     Dates: start: 20091023, end: 20091023
  9. FLUOROURACIL [Concomitant]
     Dosage: 3500 MG (1933.7 MG/M2), UNK
     Route: 041
     Dates: start: 20091023, end: 20091023
  10. FLUOROURACIL [Concomitant]
     Dosage: 500 MG
     Route: 040
     Dates: start: 20091113, end: 20091113
  11. FLUOROURACIL [Concomitant]
     Dosage: 3000 MG (1657.5 MG/M2)
     Route: 041
     Dates: start: 20091113, end: 20091113
  12. FLUOROURACIL [Concomitant]
     Dosage: 500 MG
     Route: 040
     Dates: start: 20091127, end: 20091211
  13. FLUOROURACIL [Concomitant]
     Dosage: 3500 MG
     Route: 041
     Dates: start: 20091127, end: 20091211
  14. FLUOROURACIL [Concomitant]
     Dosage: 500 MG
     Route: 040
     Dates: start: 20091225, end: 20091225
  15. FLUOROURACIL [Concomitant]
     Dosage: 3000 MG (1657.5 MG/M2)
     Route: 041
     Dates: start: 20091225, end: 20091225
  16. FLUOROURACIL [Concomitant]
     Dosage: 500 MG
     Route: 040
     Dates: start: 20100108, end: 20100122
  17. FLUOROURACIL [Concomitant]
     Dosage: 3500 MG (1933.7 MG/M2)
     Route: 041
     Dates: start: 20100108, end: 20100122
  18. AVASTIN [Concomitant]
     Indication: COLON CANCER
     Dosage: 300 MG
     Route: 041
     Dates: start: 20091127, end: 20100122

REACTIONS (3)
  - DIARRHOEA [None]
  - HEPATIC FUNCTION ABNORMAL [None]
  - LEUKOPENIA [None]
